FAERS Safety Report 7097950-7 (Version None)
Quarter: 2010Q4

REPORT INFORMATION
  Report Type: 
  Country: None (occurrence: None)
  Receive Date: 20101112
  Receipt Date: 20101101
  Transmission Date: 20110411
  Serious: Yes (Hospitalization)
  Sender: FDA-Public Use
  Company Number: US-JNJFOC-20101100804

PATIENT
  Sex: Female
  Weight: 70.31 kg

DRUGS (3)
  1. DURAGESIC-100 [Suspect]
     Indication: BACK PAIN
     Route: 062
  2. DURAGESIC-100 [Suspect]
     Route: 062
  3. UNKNOWN MEDICATION [Concomitant]
     Route: 065

REACTIONS (8)
  - ARTHROPATHY [None]
  - BONE LESION [None]
  - INTERVERTEBRAL DISC DEGENERATION [None]
  - INTESTINAL HAEMORRHAGE [None]
  - MYASTHENIA GRAVIS [None]
  - PRODUCT ADHESION ISSUE [None]
  - THERAPEUTIC RESPONSE DECREASED [None]
  - WITHDRAWAL SYNDROME [None]
